FAERS Safety Report 7230110-5 (Version None)
Quarter: 2011Q1

REPORT INFORMATION
  Report Type: 
  Country: None (occurrence: None)
  Receive Date: 20110118
  Receipt Date: 20110110
  Transmission Date: 20110831
  Serious: Yes (Other)
  Sender: FDA-Public Use
  Company Number: US-US-EMD SERONO, INC.-233264J10USA

PATIENT
  Sex: Female
  Weight: 93 kg

DRUGS (4)
  1. DYAZIDE [Concomitant]
     Indication: HYPERTENSION
  2. REBIF [Suspect]
     Indication: MULTIPLE SCLEROSIS
     Route: 058
     Dates: start: 20061229
  3. LISINOPRIL [Concomitant]
     Indication: HYPERTENSION
  4. UNSPECIFIED MEDICATION [Concomitant]
     Indication: BLOOD CHOLESTEROL INCREASED

REACTIONS (3)
  - ASTHENIA [None]
  - NEPHROPATHY [None]
  - HYPERSOMNIA [None]
